FAERS Safety Report 4881632-3 (Version None)
Quarter: 2006Q1

REPORT INFORMATION
  Report Type: 
  Country: None (occurrence: None)
  Receive Date: 20060116
  Receipt Date: 20060106
  Transmission Date: 20060701
  Serious: Yes (Other)
  Sender: FDA-Public Use
  Company Number: PHBS2006BR00810

PATIENT
  Age: 68 Year
  Sex: Female

DRUGS (4)
  1. TRILEPTAL [Suspect]
     Indication: EPILEPSY
     Dosage: 600 MG, TID
     Route: 048
  2. EUTHYROX [Concomitant]
     Dosage: 125 UG, QD
     Route: 048
  3. EUTHYROX [Concomitant]
     Dosage: 150 UG, QD
     Route: 048
  4. URBANYL [Concomitant]
     Dosage: 15 MG/DAY
     Route: 048

REACTIONS (3)
  - CEREBROVASCULAR ACCIDENT [None]
  - EPILEPSY [None]
  - SOMNOLENCE [None]
